FAERS Safety Report 21145343 (Version 1)
Quarter: 2022Q3

REPORT INFORMATION
  Report Type: Spontaneous
  Country: DK (occurrence: DK)
  Receive Date: 20220729
  Receipt Date: 20220729
  Transmission Date: 20221026
  Serious: Yes (Other)
  Sender: FDA-Public Use
  Company Number: None

PATIENT
  Age: 64 Year
  Sex: Male

DRUGS (2)
  1. VINORELBINE [Suspect]
     Active Substance: VINORELBINE TARTRATE
     Indication: Lung cancer metastatic
     Dosage: DOSAGE:15FEB2019: 110MG. MAR2019+DAY 8:140MG. APR2019: UNKNOWN. 07MAY2019: UNKNOWN STRENGTH: UNKNOWN
     Route: 065
     Dates: start: 20190215, end: 20191024
  2. ZOMETA [Suspect]
     Active Substance: ZOLEDRONIC ACID
     Indication: Metastases to lymph nodes
     Dosage: DOSAGE: 4 MG GIVEN ON 19FEB2019, 15MAR2019, IN APR2019 AND 07MAY2019
     Route: 065
     Dates: start: 20190219, end: 20191024

REACTIONS (4)
  - Neutropenia [Unknown]
  - Renal impairment [Not Recovered/Not Resolved]
  - Renal disorder [Recovered/Resolved]
  - Platelet count decreased [Unknown]

NARRATIVE: CASE EVENT DATE: 20190201
